FAERS Safety Report 6612702-7 (Version None)
Quarter: 2010Q1

REPORT INFORMATION
  Report Type: 
  Country: None (occurrence: None)
  Receive Date: 20100303
  Receipt Date: 20100208
  Transmission Date: 20100710
  Serious: No
  Sender: FDA-Public Use
  Company Number: US-BAYER-201014002NA

PATIENT
  Age: 33 Year
  Sex: Male
  Weight: 60 kg

DRUGS (2)
  1. ULTRAVIST 150 [Suspect]
     Indication: COMPUTERISED TOMOGRAM THORAX
     Dosage: TOTAL DAILY DOSE: 100 ML  UNIT DOSE: 100 ML
     Route: 042
     Dates: start: 20100208, end: 20100208
  2. ULTRAVIST 150 [Suspect]
     Dosage: HAND INJECTED
     Route: 042
     Dates: start: 20100101, end: 20100101

REACTIONS (3)
  - CHILLS [None]
  - NAUSEA [None]
  - VOMITING [None]
